FAERS Safety Report 24316747 (Version 2)
Quarter: 2024Q4

REPORT INFORMATION
  Report Type: Spontaneous
  Country: JP (occurrence: JP)
  Receive Date: 20240913
  Receipt Date: 20241018
  Transmission Date: 20250114
  Serious: Yes (Hospitalization)
  Sender: PFIZER
  Company Number: JP-PFIZER INC-PV202400118820

PATIENT
  Age: 72 Year
  Sex: Male

DRUGS (5)
  1. XELJANZ [Suspect]
     Active Substance: TOFACITINIB CITRATE
     Indication: Rheumatoid arthritis
     Dosage: 10 MG, DAILY
     Route: 048
     Dates: start: 20240725
  2. DONEPEZIL [Concomitant]
     Active Substance: DONEPEZIL
     Indication: Dementia
     Dosage: 5 MG, 1X/DAY
  3. ALLOPURINOL [Concomitant]
     Active Substance: ALLOPURINOL
     Indication: Hyperuricaemia
     Dosage: 100 MG, 1X/DAY
  4. TAPROS [Concomitant]
     Dosage: UNK, 1X/DAY (BOTH EYES)
     Route: 047
  5. ALPHAGAN P [Concomitant]
     Active Substance: BRIMONIDINE TARTRATE
     Dosage: UNK UNK, 2X/DAY (LEFT EYE)
     Route: 047

REACTIONS (2)
  - Hyponatraemia [Recovered/Resolved]
  - Heat illness [Unknown]

NARRATIVE: CASE EVENT DATE: 20240801
